FAERS Safety Report 25443740 (Version 2)
Quarter: 2025Q4

REPORT INFORMATION
  Report Type: Report from Study
  Country: US (occurrence: US)
  Receive Date: 20250617
  Receipt Date: 20251102
  Transmission Date: 20260117
  Serious: Yes (Other)
  Sender: TAKEDA
  Company Number: US-TAKEDA-2025TUS054034

PATIENT
  Age: 77 Year
  Sex: Female

DRUGS (1)
  1. MARIBAVIR [Suspect]
     Active Substance: MARIBAVIR
     Indication: Post procedural complication
     Dosage: 400 MILLIGRAM, BID
     Dates: start: 20250523

REACTIONS (4)
  - Pneumonia [Unknown]
  - White blood cell count decreased [Unknown]
  - Insurance issue [Unknown]
  - Dysgeusia [Unknown]
